FAERS Safety Report 13937145 (Version 1)
Quarter: 2017Q3

REPORT INFORMATION
  Report Type: Spontaneous
  Country: US (occurrence: US)
  Receive Date: 20170905
  Receipt Date: 20170905
  Transmission Date: 20171127
  Serious: No
  Sender: FDA-Public Use
  Company Number: US-BAYER-2017-161982

PATIENT
  Age: 45 Year
  Sex: Female
  Weight: 57 kg

DRUGS (3)
  1. MIRALAX [Suspect]
     Active Substance: POLYETHYLENE GLYCOL 3350
     Indication: COLONOSCOPY
  2. UNICAP T [VITAMINS NOS] [Concomitant]
     Dosage: UNK
  3. MIRALAX [Suspect]
     Active Substance: POLYETHYLENE GLYCOL 3350
     Indication: GASTROINTESTINAL DISORDER
     Dosage: 1 DF, UNK
     Route: 048

REACTIONS (4)
  - Off label use [None]
  - Product use in unapproved indication [Unknown]
  - Inappropriate prescribing [Unknown]
  - Incorrect drug administration duration [Unknown]
